FAERS Safety Report 15451983 (Version 4)
Quarter: 2020Q2

REPORT INFORMATION
  Report Type: Spontaneous
  Country: US (occurrence: US)
  Receive Date: 20181001
  Receipt Date: 20200603
  Transmission Date: 20200713
  Serious: Yes (Hospitalization, Other)
  Sender: FDA-Public Use
  Company Number: US-PFIZER INC-2018388569

PATIENT
  Age: 71 Year
  Sex: Female
  Weight: 136 kg

DRUGS (8)
  1. LYRICA [Suspect]
     Active Substance: PREGABALIN
     Indication: NEUROPATHY PERIPHERAL
  2. LYRICA [Suspect]
     Active Substance: PREGABALIN
     Indication: MUSCLE SPASMS
  3. LYRICA [Suspect]
     Active Substance: PREGABALIN
     Indication: BACK PAIN
  4. LYRICA [Suspect]
     Active Substance: PREGABALIN
     Indication: SCIATICA
     Dosage: 150 MG, 2X/DAY
     Route: 048
  5. LYRICA [Suspect]
     Active Substance: PREGABALIN
     Indication: LIMB DISCOMFORT
     Dosage: 150 MG, 2X/DAY
     Route: 048
  6. LYRICA [Suspect]
     Active Substance: PREGABALIN
     Indication: PAIN IN EXTREMITY
  7. HUMALOG [Concomitant]
     Active Substance: INSULIN LISPRO
     Indication: DIABETES MELLITUS
     Dosage: UNK
  8. BASAGLAR [Concomitant]
     Active Substance: INSULIN GLARGINE
     Indication: DIABETES MELLITUS
     Dosage: 68 IU, 1X/DAY [AT BED TIME DAILY]

REACTIONS (7)
  - Immobile [Unknown]
  - Frustration tolerance decreased [Unknown]
  - Dependence [Unknown]
  - Feeling abnormal [Unknown]
  - Vision blurred [Unknown]
  - Malaise [Unknown]
  - Asthma [Recovering/Resolving]
